FAERS Safety Report 10240399 (Version 1)
Quarter: 2014Q2

REPORT INFORMATION
  Report Type: Spontaneous
  Country: US (occurrence: US)
  Receive Date: 20140617
  Receipt Date: 20140617
  Transmission Date: 20141212
  Serious: No
  Sender: FDA-Public Use
  Company Number: US-BIOGENIDEC-2014BI054838

PATIENT
  Age: 24 Year
  Sex: Female

DRUGS (3)
  1. TECFIDERA [Suspect]
     Indication: PRODUCT USED FOR UNKNOWN INDICATION
     Route: 048
     Dates: start: 20140325, end: 20140401
  2. TECFIDERA [Suspect]
     Indication: PRODUCT USED FOR UNKNOWN INDICATION
     Route: 048
     Dates: start: 20140402
  3. IMPLANON [Concomitant]

REACTIONS (5)
  - Muscle spasticity [Unknown]
  - Hypoaesthesia [Unknown]
  - Fatigue [Unknown]
  - Pain [Unknown]
  - Ophthalmoplegia [Unknown]
